FAERS Safety Report 20497631 (Version 3)
Quarter: 2022Q2

REPORT INFORMATION
  Report Type: Spontaneous
  Country: JP (occurrence: JP)
  Receive Date: 20220221
  Receipt Date: 20220429
  Transmission Date: 20220721
  Serious: Yes (Hospitalization, Other)
  Sender: FDA-Public Use
  Company Number: JP-SUN PHARMACEUTICAL INDUSTRIES LTD-2022R1-326410

PATIENT
  Age: 64 Year
  Sex: Male

DRUGS (2)
  1. CAPECITABINE [Suspect]
     Active Substance: CAPECITABINE
     Indication: Rectal cancer
     Dosage: 2000 MILLIGRAM/SQ. METER, DAILY/ DAYS 1 TO 14
     Route: 048
  2. OXALIPLATIN [Concomitant]
     Active Substance: OXALIPLATIN
     Indication: Rectal cancer
     Dosage: 130 MILLIGRAM/SQ. METER/ ON DAY 1/EVERY 3 WEEK
     Route: 065

REACTIONS (5)
  - Febrile neutropenia [Unknown]
  - Renal failure [Unknown]
  - Diarrhoea [Unknown]
  - Haematochezia [Unknown]
  - Pyrexia [Unknown]
